FAERS Safety Report 7186860-2 (Version None)
Quarter: 2010Q4

REPORT INFORMATION
  Report Type: 
  Country: None (occurrence: None)
  Receive Date: 20101222
  Receipt Date: 20101216
  Transmission Date: 20110411
  Serious: Yes (Other)
  Sender: FDA-Public Use
  Company Number: B0689865A

PATIENT
  Age: 67 Year
  Sex: Male

DRUGS (2)
  1. REQUIP XL [Suspect]
     Indication: PARKINSON'S DISEASE
     Dosage: 36MG PER DAY
     Route: 048
     Dates: start: 20080101
  2. ROPINIROLE [Suspect]
     Indication: PARKINSON'S DISEASE
     Route: 048

REACTIONS (13)
  - ABNORMAL BEHAVIOUR [None]
  - AGGRESSION [None]
  - DEMENTIA [None]
  - DEPENDENCE [None]
  - DISTURBANCE IN SEXUAL AROUSAL [None]
  - INCORRECT DOSE ADMINISTERED [None]
  - MENTAL DISORDER [None]
  - OBSESSIVE-COMPULSIVE DISORDER [None]
  - PERSONALITY CHANGE [None]
  - RESTLESSNESS [None]
  - SEXUAL RELATIONSHIP CHANGE [None]
  - VOYEURISM [None]
  - WITHDRAWAL SYNDROME [None]
